FAERS Safety Report 8301774-X (Version None)
Quarter: 2012Q2

REPORT INFORMATION
  Report Type: 
  Country: None (occurrence: None)
  Receive Date: 20120417
  Receipt Date: 20120404
  Transmission Date: 20120825
  Serious: Yes (Hospitalization)
  Sender: FDA-Public Use
  Company Number: 2012MA004711

PATIENT
  Age: 71 Year
  Sex: Male

DRUGS (3)
  1. SPIRONOLACTONE [Suspect]
     Indication: PRODUCT USED FOR UNKNOWN INDICATION
     Dosage: QD;PO
     Route: 048
     Dates: end: 20120201
  2. UNSPECIFIED ANTIBIOTIC [Concomitant]
  3. METFORMIN HYDROCHLORIDE [Suspect]
     Indication: PRODUCT USED FOR UNKNOWN INDICATION
     Dosage: QD;PO
     Route: 048
     Dates: end: 20120201

REACTIONS (3)
  - ENDOCARDITIS [None]
  - BLOOD CREATININE INCREASED [None]
  - HYPERKALAEMIA [None]
